FAERS Safety Report 6499840-7 (Version None)
Quarter: 2009Q4

REPORT INFORMATION
  Report Type: 
  Country: None (occurrence: None)
  Receive Date: 20091214
  Receipt Date: 20091201
  Transmission Date: 20100525
  Serious: Yes (Death, Life-Threatening)
  Sender: FDA-Public Use
  Company Number: 069

PATIENT
  Age: 60 Year
  Sex: Male

DRUGS (1)
  1. FAZACLO 100 MG ODT AZUR PHARMA (FORMERLY ALAMO PHARMACEUTICALS) [Suspect]
     Indication: SCHIZOPHRENIA
     Dosage: 700 MG PO DAILY
     Route: 048
     Dates: start: 20051221, end: 20060809

REACTIONS (4)
  - LUNG NEOPLASM MALIGNANT [None]
  - METASTASES TO NERVOUS SYSTEM [None]
  - METASTASIS [None]
  - MULTI-ORGAN DISORDER [None]
